FAERS Safety Report 17725469 (Version 1)
Quarter: 2020Q2

REPORT INFORMATION
  Report Type: Spontaneous
  Country: US (occurrence: US)
  Receive Date: 20200429
  Receipt Date: 20200429
  Transmission Date: 20200714
  Serious: No
  Sender: FDA-Public Use
  Company Number: US-STRONGBRIDGE BIOPHARMA-2020-STR-000104

PATIENT
  Sex: Female

DRUGS (2)
  1. KEVEYIS [Suspect]
     Active Substance: DICHLORPHENAMIDE
     Dosage: 25 MG, BID
     Route: 048
  2. KEVEYIS [Suspect]
     Active Substance: DICHLORPHENAMIDE
     Indication: FAMILIAL PERIODIC PARALYSIS
     Dosage: 50 MG, BID
     Route: 048
     Dates: start: 20190928

REACTIONS (5)
  - Fatigue [Unknown]
  - Asthenia [Unknown]
  - Metabolic acidosis [Unknown]
  - Wrong technique in product usage process [Unknown]
  - Underdose [Unknown]
